FAERS Safety Report 13874265 (Version 4)
Quarter: 2017Q3

REPORT INFORMATION
  Report Type: Spontaneous
  Country: US (occurrence: US)
  Receive Date: 20170816
  Receipt Date: 20170928
  Transmission Date: 20171127
  Serious: Yes (Hospitalization, Other)
  Sender: FDA-Public Use
  Company Number: US-LUNDBECK-DKLU2035603

PATIENT
  Age: 80 Year
  Sex: Male

DRUGS (4)
  1. NORTHERA [Suspect]
     Active Substance: DROXIDOPA
     Indication: SYNCOPE
     Route: 048
     Dates: start: 20170731
  2. NORTHERA [Suspect]
     Active Substance: DROXIDOPA
     Indication: DEMENTIA ALZHEIMER^S TYPE
     Route: 048
     Dates: start: 20170613
  3. MIDODRINE [Concomitant]
     Active Substance: MIDODRINE
     Indication: PRODUCT USED FOR UNKNOWN INDICATION
     Route: 065
  4. NORTHERA [Suspect]
     Active Substance: DROXIDOPA
     Indication: PARKINSON^S DISEASE
     Route: 048
     Dates: start: 20170709

REACTIONS (6)
  - Haemorrhage [Unknown]
  - Bladder cancer [Unknown]
  - Blood urine present [Unknown]
  - Urinary tract infection bacterial [Unknown]
  - Pyrexia [Unknown]
  - Escherichia infection [Unknown]

NARRATIVE: CASE EVENT DATE: 20170729
